FAERS Safety Report 4758923-X (Version None)
Quarter: 2005Q3

REPORT INFORMATION
  Report Type: 
  Country: None (occurrence: None)
  Receive Date: 20050831
  Receipt Date: 20050812
  Transmission Date: 20060218
  Serious: Yes (Death)
  Sender: FDA-Public Use
  Company Number: 05-07-1245

PATIENT
  Sex: Male

DRUGS (12)
  1. CIPROFLOXACIN [Suspect]
     Dosage: 250 MG BID
  2. SPIRIVA [Suspect]
     Dosage: 18 MCG QD INHALATION
     Route: 055
  3. COMBIVENT [Suspect]
     Dosage: 2.5ML QDS INHALATION
     Route: 055
  4. SERETIDE [Suspect]
     Dosage: 1 DOSE BID INHALATION
  5. SODIUM CHLORIDE [Suspect]
     Dosage: 0.9% SOLUTION
  6. PREDNISOLONE [Suspect]
     Dosage: 5MG 6QD
  7. AMLODIPINE [Suspect]
     Dosage: 5MG QD/2 TAB
  8. TRIMETHOPRIM [Suspect]
     Dosage: 200MG BID
  9. FUROSEMIDE [Suspect]
     Dosage: 40MG OM
  10. INSTILLAGEL [Suspect]
     Dosage: 11 ML
  11. CLOTRIMAZOLE [Suspect]
     Dosage: 1% 2-3 TIMES
  12. DERMALO HYDROBASE UNKNWON [Suspect]
     Dosage: AS NEEDED TOPICAL
     Route: 061

REACTIONS (4)
  - CARDIAC FAILURE CONGESTIVE [None]
  - CHRONIC OBSTRUCTIVE PULMONARY DISEASE [None]
  - CYSTITIS [None]
  - DIZZINESS [None]
